FAERS Safety Report 5187679-4 (Version None)
Quarter: 2006Q4

REPORT INFORMATION
  Report Type: 
  Country: None (occurrence: None)
  Receive Date: 20061214
  Receipt Date: 20061206
  Transmission Date: 20070319
  Serious: Yes (Other)
  Sender: FDA-Public Use
  Company Number: 2006SP008019

PATIENT
  Age: 64 Year
  Sex: Male

DRUGS (1)
  1. DIPROSTENE [Suspect]
     Indication: DRUG USE FOR UNKNOWN INDICATION
     Dates: start: 20061206

REACTIONS (5)
  - ERYTHEMA [None]
  - MALAISE [None]
  - OCULAR HYPERAEMIA [None]
  - PALLOR [None]
  - PARAESTHESIA [None]
